FAERS Safety Report 23201301 (Version 1)
Quarter: 2023Q4

REPORT INFORMATION
  Report Type: Spontaneous
  Country: US (occurrence: US)
  Receive Date: 20231118
  Receipt Date: 20231118
  Transmission Date: 20240110
  Serious: Yes (Other)
  Sender: FDA-Public Use
  Company Number: US-TEVA-2023-US-2947546

PATIENT
  Age: 43 Year
  Sex: Female

DRUGS (1)
  1. OLANZAPINE [Suspect]
     Active Substance: OLANZAPINE
     Indication: Product used for unknown indication
     Route: 065

REACTIONS (12)
  - Necrosis [Unknown]
  - Pyrexia [Unknown]
  - Muscle spasms [Unknown]
  - Blood urine present [Unknown]
  - Hypoaesthesia [Unknown]
  - Mass [Unknown]
  - Infection [Unknown]
  - Abdominal wall infection [Unknown]
  - Discharge [Unknown]
  - Abscess [Unknown]
  - Cellulitis [Unknown]
  - Abdominal wall wound [Unknown]
